FAERS Safety Report 17019764 (Version 1)
Quarter: 2019Q4

REPORT INFORMATION
  Report Type: Spontaneous
  Country: US (occurrence: US)
  Receive Date: 20191112
  Receipt Date: 20191112
  Transmission Date: 20200122
  Serious: No
  Sender: FDA-Public Use
  Company Number: US-BTG-201900025

PATIENT
  Sex: Male

DRUGS (2)
  1. PAIN MEDICATION [Concomitant]
     Active Substance: UNSPECIFIED INGREDIENT
     Indication: PAIN PROPHYLAXIS
     Route: 065
  2. CROFAB [Suspect]
     Active Substance: CROTALIDAE POLYVALENT IMMUNE FAB (OVINE)
     Indication: SNAKE BITE
     Dosage: 4 BAGS,UNKNOWN NUMBER OF VIALS FOR BAG
     Route: 065
     Dates: start: 20170528

REACTIONS (3)
  - Macule [Unknown]
  - Feeling abnormal [Unknown]
  - Arthralgia [Not Recovered/Not Resolved]
